FAERS Safety Report 20547327 (Version 1)
Quarter: 2022Q1

REPORT INFORMATION
  Report Type: Spontaneous
  Country: US (occurrence: US)
  Receive Date: 20220303
  Receipt Date: 20220303
  Transmission Date: 20220423
  Serious: No
  Sender: FDA-Public Use
  Company Number: US-PFIZER INC-2016510363

PATIENT
  Age: 85 Year
  Sex: Female
  Weight: 86.18 kg

DRUGS (3)
  1. ARTHROTEC [Suspect]
     Active Substance: DICLOFENAC SODIUM\MISOPROSTOL
     Indication: Pain
     Dosage: AS NEEDED (75 MG- 200 MCG TABLET, EVERY OTHER DAY PRN)
  2. ARTHROTEC [Suspect]
     Active Substance: DICLOFENAC SODIUM\MISOPROSTOL
     Indication: Osteoarthritis
     Dosage: 1 DF, DAILY [ARTHROTEC 75 MG- 200 MCG TABLET]
     Route: 048
  3. ARTHROTEC [Suspect]
     Active Substance: DICLOFENAC SODIUM\MISOPROSTOL
     Indication: Arthritis
     Dosage: 75 MG, 2X/DAY

REACTIONS (2)
  - Back pain [Unknown]
  - Arthralgia [Unknown]
